FAERS Safety Report 4383335-0 (Version None)
Quarter: 2004Q2

REPORT INFORMATION
  Report Type: 
  Country: None (occurrence: None)
  Receive Date: 20040618
  Receipt Date: 20040607
  Transmission Date: 20050107
  Serious: Yes (Other)
  Sender: FDA-Public Use
  Company Number: GB-JNJFOC-20040601736

PATIENT
  Sex: Male

DRUGS (1)
  1. REMICADE [Suspect]

REACTIONS (1)
  - LIVER FUNCTION TEST ABNORMAL [None]
